FAERS Safety Report 5147130-7 (Version None)
Quarter: 2006Q4

REPORT INFORMATION
  Report Type: 
  Country: None (occurrence: None)
  Receive Date: 20061103
  Receipt Date: 20061018
  Transmission Date: 20070319
  Serious: Yes (Life-Threatening, Hospitalization)
  Sender: FDA-Public Use
  Company Number: DSA_28870_2006

PATIENT
  Age: 32 Year
  Sex: Female

DRUGS (5)
  1. TAVOR [Suspect]
     Dosage: 10 MG ONCE PO
     Route: 048
     Dates: start: 20061018, end: 20061018
  2. VENLAFAXINE HCL [Suspect]
     Dosage: 1500 MG ONCE PO
     Route: 048
     Dates: start: 20061018, end: 20061018
  3. CARBAMAZEPINE [Suspect]
     Dosage: 16000 MG ONCE PO
     Route: 048
     Dates: start: 20061018, end: 20061018
  4. SEROQUEL [Suspect]
     Dosage: 3000 MG ONCE PO
     Route: 048
     Dates: start: 20061018, end: 20061018
  5. ZYPREXA [Suspect]
     Dosage: DF ONCE
     Dates: start: 20061018, end: 20061018

REACTIONS (4)
  - FATIGUE [None]
  - MULTIPLE DRUG OVERDOSE INTENTIONAL [None]
  - SUICIDE ATTEMPT [None]
  - TACHYCARDIA [None]
